FAERS Safety Report 17409621 (Version 1)
Quarter: 2020Q1

REPORT INFORMATION
  Report Type: Report from Study
  Country: US (occurrence: US)
  Receive Date: 20200212
  Receipt Date: 20200212
  Transmission Date: 20200409
  Serious: Yes (Death, Other)
  Sender: FDA-Public Use
  Company Number: US-TEVA-2020-US-1182839

PATIENT
  Age: 46 Year
  Sex: Male

DRUGS (10)
  1. CYCLOSPORINE A [Suspect]
     Active Substance: CYCLOSPORINE
     Indication: IMMUNOSUPPRESSANT DRUG THERAPY
     Route: 065
  2. DOXORUBICIN [Suspect]
     Active Substance: DOXORUBICIN
     Indication: HODGKIN^S DISEASE
     Dosage: SIX CYCLES
     Route: 065
  3. SOLU-MEDROL [Suspect]
     Active Substance: METHYLPREDNISOLONE SODIUM SUCCINATE
     Indication: APLASTIC ANAEMIA
  4. DACARBAZINE. [Suspect]
     Active Substance: DACARBAZINE
     Indication: HODGKIN^S DISEASE
     Dosage: SIX CYCLES
     Route: 065
  5. VINBLASTINE [Suspect]
     Active Substance: VINBLASTINE
     Indication: HODGKIN^S DISEASE
     Dosage: SIX CYCLES
     Route: 065
  6. BLEOMYCIN [Suspect]
     Active Substance: BLEOMYCIN SULFATE
     Indication: HODGKIN^S DISEASE
     Dosage: SIX CYCLES
     Route: 065
  7. ATG [Suspect]
     Active Substance: LAPINE T-LYMPHOCYTE IMMUNE GLOBULIN
     Indication: APLASTIC ANAEMIA
  8. SOLU-MEDROL [Suspect]
     Active Substance: METHYLPREDNISOLONE SODIUM SUCCINATE
     Indication: IMMUNOSUPPRESSANT DRUG THERAPY
     Route: 065
  9. ATG [Suspect]
     Active Substance: LAPINE T-LYMPHOCYTE IMMUNE GLOBULIN
     Indication: IMMUNOSUPPRESSANT DRUG THERAPY
     Route: 065
  10. CYCLOSPORINE A [Suspect]
     Active Substance: CYCLOSPORINE
     Indication: APLASTIC ANAEMIA

REACTIONS (4)
  - Acute myeloid leukaemia [Fatal]
  - Infection [Fatal]
  - Aplastic anaemia [Fatal]
  - Drug ineffective [Unknown]
